FAERS Safety Report 6031132-2 (Version None)
Quarter: 2008Q4

REPORT INFORMATION
  Report Type: 
  Country: None (occurrence: None)
  Receive Date: 20081222
  Receipt Date: 20081119
  Transmission Date: 20090506
  Serious: No
  Sender: FDA-Public Use
  Company Number: US-WYE-H06920408

PATIENT
  Age: 44 Year
  Sex: Female
  Weight: 56.75 kg

DRUGS (3)
  1. PRISTIQ [Suspect]
     Dosage: SEE IMAGE
     Route: 048
     Dates: start: 20081001, end: 20080101
  2. PRISTIQ [Suspect]
     Dosage: SEE IMAGE
     Route: 048
     Dates: start: 20080901, end: 20081001
  3. PRISTIQ [Suspect]
     Dosage: SEE IMAGE
     Route: 048
     Dates: start: 20080101

REACTIONS (11)
  - DIZZINESS [None]
  - DRUG WITHDRAWAL SYNDROME [None]
  - HEADACHE [None]
  - HYPERHIDROSIS [None]
  - INFLUENZA LIKE ILLNESS [None]
  - INSOMNIA [None]
  - IRRITABILITY [None]
  - NAUSEA [None]
  - NIGHTMARE [None]
  - PAIN [None]
  - VOMITING [None]
